FAERS Safety Report 8490218-3 (Version None)
Quarter: 2012Q3

REPORT INFORMATION
  Report Type: 
  Country: None (occurrence: None)
  Receive Date: 20120705
  Receipt Date: 20111007
  Transmission Date: 20120928
  Serious: No
  Sender: FDA-Public Use
  Company Number: US-BAUSCH-2011BL006837

PATIENT
  Age: 53 Year
  Sex: Female

DRUGS (2)
  1. OPCON-A [Suspect]
     Indication: MULTIPLE ALLERGIES
     Route: 047
     Dates: start: 20110901, end: 20110901
  2. OPCON-A [Suspect]
     Route: 047
     Dates: start: 20111005, end: 20111005

REACTIONS (3)
  - PRURITUS [None]
  - ERYTHEMA [None]
  - EYE SWELLING [None]
